FAERS Safety Report 10424257 (Version 2)
Quarter: 2015Q1

REPORT INFORMATION
  Report Type: Spontaneous
  Country: US (occurrence: US)
  Receive Date: 20140902
  Receipt Date: 20150220
  Transmission Date: 20150720
  Serious: No
  Sender: FDA-Public Use
  Company Number: US-PFIZER INC-2014240924

PATIENT
  Age: 64 Year
  Sex: Female
  Weight: 89 kg

DRUGS (4)
  1. ATENOLOL. [Concomitant]
     Active Substance: ATENOLOL
     Indication: HYPERTENSION
     Dosage: UNK
  2. LYRICA [Suspect]
     Active Substance: PREGABALIN
     Indication: FIBROMYALGIA
     Dosage: 50 MG, 3X/DAY
     Route: 048
  3. LYRICA [Suspect]
     Active Substance: PREGABALIN
     Indication: MYOSITIS
  4. LYRICA [Suspect]
     Active Substance: PREGABALIN
     Indication: MYALGIA
     Dosage: 50 MG, 3X/DAY
     Route: 048
     Dates: start: 20150120

REACTIONS (5)
  - Product use issue [Unknown]
  - Myalgia [Unknown]
  - Arthralgia [Unknown]
  - Neck pain [Unknown]
  - Gait disturbance [Unknown]
